FAERS Safety Report 16429755 (Version 7)
Quarter: 2019Q4

REPORT INFORMATION
  Report Type: Report from Study
  Country: BR (occurrence: CO)
  Receive Date: 20190614
  Receipt Date: 20191018
  Transmission Date: 20200122
  Serious: Yes (Hospitalization, Other)
  Sender: FDA-Public Use
  Company Number: CO-ASTELLAS-2017US009974

PATIENT
  Age: 48 Year
  Sex: Male

DRUGS (7)
  1. TACROLIMUS. [Suspect]
     Active Substance: TACROLIMUS
     Dosage: 8 MG, ONCE DAILY (1 CAPSULE OF 5 MG AND 3 CAPSULES OF 1 MG)
     Route: 048
     Dates: start: 20190606
  2. INSULIN DETEMIR [Concomitant]
     Active Substance: INSULIN DETEMIR
     Indication: DIABETES MELLITUS
     Dosage: 30 AND 32 IU, UNKNOWN FREQ. (30-32- UNITS)
     Route: 058
     Dates: start: 201904
  3. INSULIN ASPART [Concomitant]
     Active Substance: INSULIN ASPART
     Indication: DIABETES MELLITUS
     Dosage: 10 IU, UNKNOWN FREQ.(BEFORE EACH MEAL)
     Route: 058
     Dates: start: 201904
  4. PRAZOSIN. [Concomitant]
     Active Substance: PRAZOSIN
     Indication: BLOOD PRESSURE MEASUREMENT
     Dosage: 6 MG, ONCE DAILY (6 TABLETS OF 1 MG)
     Route: 048
     Dates: start: 201904
  5. CLONIDINE. [Concomitant]
     Active Substance: CLONIDINE
     Indication: BLOOD PRESSURE MEASUREMENT
     Dosage: 5 DF, ONCE DAILY (5 TABLETS OF 150 MCG)
     Route: 048
     Dates: start: 201904
  6. TACROLIMUS. [Suspect]
     Active Substance: TACROLIMUS
     Indication: RENAL TRANSPLANT
     Dosage: 6 MG, ONCE DAILY (1 TABLET OF 5 MG AND 1 TABLET OF 1 MG)
     Route: 048
     Dates: start: 20090502
  7. MYCOPHENOLATE [Concomitant]
     Active Substance: MYCOPHENOLIC ACID
     Indication: TRANSPLANT
     Route: 048
     Dates: start: 20090606

REACTIONS (18)
  - Dysuria [Recovering/Resolving]
  - Transient ischaemic attack [Recovered/Resolved]
  - Sepsis [Recovered/Resolved]
  - Hyponatraemia [Recovered/Resolved]
  - Staphylococcal infection [Not Recovered/Not Resolved]
  - Urinary tract infection [Recovered/Resolved]
  - Stress [Recovered/Resolved]
  - Blood creatinine increased [Unknown]
  - Urinary tract infection [Recovering/Resolving]
  - Anaemia [Recovering/Resolving]
  - Wound [Recovered/Resolved]
  - Psychiatric symptom [Not Recovered/Not Resolved]
  - Palpitations [Not Recovered/Not Resolved]
  - Dizziness [Not Recovered/Not Resolved]
  - Malnutrition [Recovering/Resolving]
  - Headache [Recovering/Resolving]
  - Blood pressure inadequately controlled [Recovered/Resolved]
  - Walking aid user [Recovered/Resolved]

NARRATIVE: CASE EVENT DATE: 2012
